FAERS Safety Report 6339447-5 (Version None)
Quarter: 2009Q3

REPORT INFORMATION
  Report Type: 
  Country: None (occurrence: None)
  Receive Date: 20090903
  Receipt Date: 20090827
  Transmission Date: 20100115
  Serious: Yes (Hospitalization, Other)
  Sender: FDA-Public Use
  Company Number: US-ELI_LILLY_AND_COMPANY-US200908006297

PATIENT
  Sex: Male
  Weight: 115.65 kg

DRUGS (3)
  1. BYETTA [Suspect]
     Indication: TYPE 2 DIABETES MELLITUS
     Dosage: 5 UG, 2/D
     Dates: start: 20080826, end: 20080827
  2. LOVASTATIN [Concomitant]
     Indication: BLOOD CHOLESTEROL INCREASED
     Dates: start: 20000101
  3. PEPCID [Concomitant]
     Indication: DYSPEPSIA

REACTIONS (5)
  - ABDOMINAL PAIN [None]
  - ANURIA [None]
  - PANCREATITIS [None]
  - POLYURIA [None]
  - WEIGHT DECREASED [None]
